FAERS Safety Report 14901718 (Version 1)
Quarter: 2018Q2

REPORT INFORMATION
  Report Type: Spontaneous
  Country: US (occurrence: US)
  Receive Date: 20180516
  Receipt Date: 20180516
  Transmission Date: 20180711
  Serious: Yes (Hospitalization, Other)
  Sender: FDA-Public Use
  Company Number: US-GLAXOSMITHKLINE-US2018086769

PATIENT
  Age: 82 Year
  Sex: Male

DRUGS (10)
  1. KEPPRA [Concomitant]
     Active Substance: LEVETIRACETAM
  2. KLOR-CON [Concomitant]
     Active Substance: POTASSIUM CHLORIDE
  3. METOPROLOL ER [Concomitant]
     Active Substance: METOPROLOL SUCCINATE
  4. ASPIRIN. [Concomitant]
     Active Substance: ASPIRIN
  5. TANZEUM [Suspect]
     Active Substance: ALBIGLUTIDE
     Indication: DIABETES MELLITUS
     Dosage: 30 MG, UNK
     Route: 058
  6. FUROSEMIDE. [Concomitant]
     Active Substance: FUROSEMIDE
  7. PRAVASTATIN. [Concomitant]
     Active Substance: PRAVASTATIN
  8. FINASTERIDE. [Concomitant]
     Active Substance: FINASTERIDE
  9. LISINOPRIL. [Concomitant]
     Active Substance: LISINOPRIL
  10. TERAZOSIN [Concomitant]
     Active Substance: TERAZOSIN\TERAZOSIN HYDROCHLORIDE

REACTIONS (8)
  - Haematoma [Recovered/Resolved]
  - Drug dose omission [Unknown]
  - Intensive care [Recovered/Resolved]
  - Rehabilitation therapy [Unknown]
  - Fall [Recovered/Resolved]
  - Head injury [Recovered/Resolved]
  - Haemorrhage [Recovered/Resolved]
  - Loss of consciousness [Recovered/Resolved]

NARRATIVE: CASE EVENT DATE: 201712
